FAERS Safety Report 8182302-9 (Version None)
Quarter: 2012Q1

REPORT INFORMATION
  Report Type: 
  Country: None (occurrence: None)
  Receive Date: 20120302
  Receipt Date: 20120227
  Transmission Date: 20120608
  Serious: Yes (Hospitalization)
  Sender: FDA-Public Use
  Company Number: PHEH2012US004838

PATIENT
  Sex: Female
  Weight: 63.946 kg

DRUGS (1)
  1. GILENYA [Suspect]
     Indication: RELAPSING-REMITTING MULTIPLE SCLEROSIS
     Dosage: 0.5 MG, QD
     Route: 048
     Dates: start: 20120209

REACTIONS (4)
  - HYPOAESTHESIA [None]
  - DYSPHEMIA [None]
  - HEMIPARESIS [None]
  - MALAISE [None]
